FAERS Safety Report 24849291 (Version 1)
Quarter: 2025Q1

REPORT INFORMATION
  Report Type: Spontaneous
  Country: US (occurrence: None)
  Receive Date: 20250116
  Receipt Date: 20250116
  Transmission Date: 20250409
  Serious: Yes (Hospitalization)
  Sender: FDA-CTU
  Company Number: None

PATIENT
  Age: 58 Year
  Sex: Male
  Weight: 83.9 kg

DRUGS (3)
  1. IRINOTECAN [Suspect]
     Active Substance: IRINOTECAN
     Dates: end: 20250114
  2. LEUCOVORIN CALCIUM [Suspect]
     Active Substance: LEUCOVORIN CALCIUM
     Dates: end: 20241214
  3. ELOXATIN [Suspect]
     Active Substance: OXALIPLATIN
     Dates: end: 20250114

REACTIONS (5)
  - Staring [None]
  - Tremor [None]
  - Drooling [None]
  - Disorientation [None]
  - Product administration interrupted [None]

NARRATIVE: CASE EVENT DATE: 20250114
